FAERS Safety Report 11701113 (Version 1)
Quarter: 2015Q4

REPORT INFORMATION
  Report Type: Report from Study
  Country: JP (occurrence: JP)
  Receive Date: 20151105
  Receipt Date: 20151105
  Transmission Date: 20160304
  Serious: Yes (Death, Hospitalization)
  Sender: FDA-Public Use
  Company Number: JP WARNER-CHILCOTT 2015-001898

PATIENT
  Age: 87 Year
  Sex: Female

DRUGS (7)
  1. ACTONEL [Suspect]
     Active Substance: RISEDRONATE SODIUM
     Indication: OSTEOPOROSIS
     Route: 048
     Dates: start: 20140514, end: 20150518
  2. CALCIUM LACTATE [Concomitant]
     Active Substance: CALCIUM LACTATE
     Dates: start: 20140401
  3. LINAGLIPTIN [Concomitant]
     Active Substance: LINAGLIPTIN
     Dates: start: 20140319, end: 20150901
  4. ADANT [Concomitant]
     Dates: start: 20131022, end: 20150810
  5. MOHRUS [Concomitant]
     Active Substance: KETOPROFEN
     Dates: start: 20140121
  6. BAYASPIRIN [Concomitant]
     Active Substance: ASPIRIN
     Dates: start: 20030403
  7. NORVASC [Concomitant]
     Active Substance: AMLODIPINE BESYLATE
     Dates: start: 20030403, end: 20150901

REACTIONS (7)
  - Decreased appetite [None]
  - Dyspnoea [None]
  - Malaise [None]
  - Interstitial lung disease [None]
  - Cough [None]
  - Pyrexia [None]
  - Muscle spasms [None]
